FAERS Safety Report 8348930-2 (Version None)
Quarter: 2012Q2

REPORT INFORMATION
  Report Type: 
  Country: None (occurrence: None)
  Receive Date: 20120510
  Receipt Date: 20120508
  Transmission Date: 20120825
  Serious: Yes (Other)
  Sender: FDA-Public Use
  Company Number: BE-BAYER-2012-045036

PATIENT
  Age: 50 Year
  Sex: Male

DRUGS (1)
  1. AVELOX [Suspect]
     Indication: RESPIRATORY TRACT INFECTION
     Dosage: 400 MG, QD

REACTIONS (7)
  - LIP SWELLING [None]
  - HYPERSENSITIVITY [None]
  - DRY MOUTH [None]
  - GLOSSITIS [None]
  - STOMATITIS HAEMORRHAGIC [None]
  - ORAL PAIN [None]
  - ORAL MUCOSAL BLISTERING [None]
